FAERS Safety Report 10135895 (Version 2)
Quarter: 2014Q4

REPORT INFORMATION
  Report Type: Report from Study
  Country: TR (occurrence: TR)
  Receive Date: 20140429
  Receipt Date: 20141126
  Transmission Date: 20150528
  Serious: Yes (Other)
  Sender: FDA-Public Use
  Company Number: TR-US-EMD SERONO, INC.-7284811

PATIENT
  Sex: Female
  Weight: 49 kg

DRUGS (7)
  1. NEURONTIN [Concomitant]
     Active Substance: GABAPENTIN
     Indication: BALANCE DISORDER
  2. APRANAX                            /00256202/ [Concomitant]
     Active Substance: NAPROXEN
     Indication: PYREXIA
  3. SIRDALUD MR [Concomitant]
     Active Substance: TIZANIDINE
     Indication: MUSCLE RELAXANT THERAPY
  4. NOOTROPIL [Concomitant]
     Active Substance: PIRACETAM
     Indication: DIZZINESS
  5. CALCIUM D3                         /01483701/ [Concomitant]
     Active Substance: CALCIUM\CHOLECALCIFEROL
     Indication: BONE LOSS
  6. APRANAX                            /00256202/ [Concomitant]
     Active Substance: NAPROXEN
     Indication: ANALGESIC THERAPY
  7. REBIF [Suspect]
     Active Substance: INTERFERON BETA-1A
     Indication: MULTIPLE SCLEROSIS
     Dates: start: 201211, end: 201409

REACTIONS (4)
  - Weight decreased [Not Recovered/Not Resolved]
  - Balance disorder [Not Recovered/Not Resolved]
  - Vitamin D increased [Unknown]
  - Lymphoma [Not Recovered/Not Resolved]

NARRATIVE: CASE EVENT DATE: 201402
